FAERS Safety Report 26112027 (Version 1)
Quarter: 2025Q4

REPORT INFORMATION
  Report Type: Spontaneous
  Country: JP (occurrence: JP)
  Receive Date: 20251202
  Receipt Date: 20251202
  Transmission Date: 20260117
  Serious: Yes (Other)
  Sender: MERCK SHARP & DOHME LLC
  Company Number: JP-009507513-2355713

PATIENT
  Age: 75 Year
  Sex: Female

DRUGS (2)
  1. KEYTRUDA [Suspect]
     Active Substance: PEMBROLIZUMAB
     Indication: Uterine cancer
  2. LENVIMA [Suspect]
     Active Substance: LENVATINIB
     Indication: Uterine cancer

REACTIONS (7)
  - Immune-mediated hypothyroidism [Unknown]
  - Asthma [Unknown]
  - Hypertension [Unknown]
  - Deep vein thrombosis [Unknown]
  - Diabetes mellitus [Unknown]
  - Myalgia [Unknown]
  - Hypertension [Unknown]
